FAERS Safety Report 20170683 (Version 3)
Quarter: 2022Q1

REPORT INFORMATION
  Report Type: Spontaneous
  Country: GB (occurrence: GB)
  Receive Date: 20211210
  Receipt Date: 20220223
  Transmission Date: 20220423
  Serious: Yes (Disabling, Other)
  Sender: FDA-Public Use
  Company Number: None

PATIENT
  Age: 84 Year
  Sex: Female
  Weight: 60.7 kg

DRUGS (16)
  1. MONTELUKAST [Suspect]
     Active Substance: MONTELUKAST SODIUM
     Indication: Asthma
     Dosage: 1 DOSAGE FORM, QD (1 TABLET ONCE A DAY, TRIAL OVER 3M)
     Dates: start: 20211101, end: 20211118
  2. AMITRIPTYLINE [Concomitant]
     Active Substance: AMITRIPTYLINE
     Dosage: 0.5 DOSAGE FORM, NIGHTLY
     Dates: start: 20211119
  3. ATORVASTATIN [Concomitant]
     Active Substance: ATORVASTATIN
     Dosage: 1 DOSAGE FORM, QD, NIGHTLY
     Dates: start: 20210927
  4. FLUTICASONE FUROATE [Concomitant]
     Active Substance: FLUTICASONE FUROATE
     Dosage: UNK UNK, QD (1 SPRAY INTO INTO EACH NOSTRIL ONCE DAILY)
     Dates: start: 20210923
  5. BENZYDAMINE [Concomitant]
     Active Substance: BENZYDAMINE
     Dosage: GARGLE 15ML EVERY 1.5 TO 3 HOURS
     Dates: start: 20211022
  6. BISOPROLOL [Concomitant]
     Active Substance: BISOPROLOL
     Dosage: UNK UNK, QD (1 DAILY)
     Dates: start: 20210927
  7. BUTYLSCOPOLAMINE BROMIDE [Concomitant]
     Active Substance: BUTYLSCOPOLAMINE BROMIDE
     Dosage: UP TO THREE TIMES A DAY
     Dates: start: 20211022
  8. CALCIUM CARBONATE\CHOLECALCIFEROL [Concomitant]
     Active Substance: CALCIUM CARBONATE\CHOLECALCIFEROL
     Dosage: 1 DOSAGE FORM, QD
     Dates: start: 20211022
  9. FLUCLOXACILLIN [Concomitant]
     Active Substance: FLUCLOXACILLIN
     Dosage: 1 DOSAGE FORM, QID (1 CAPSULE FOUR TIMES A DAY )
     Dates: start: 20211126
  10. HYDROXOCOBALAMIN [Concomitant]
     Active Substance: HYDROXOCOBALAMIN
     Dosage: IMMEDIATELY
     Dates: start: 20211005
  11. LEVOTHYROXINE [Concomitant]
     Active Substance: LEVOTHYROXINE
     Dosage: UNK UNK, QD (1 DAILY)
     Dates: start: 20210927, end: 20211119
  12. LOPERAMIDE [Concomitant]
     Active Substance: LOPERAMIDE
     Dosage: 1 UP TO FOUR TIMES A DAY
     Dates: start: 20210927, end: 20211130
  13. QUETIAPINE [Concomitant]
     Active Substance: QUETIAPINE
     Dosage: UNK UNK, BID (1 BD)
     Dates: start: 20210927
  14. VENTOLIN [Concomitant]
     Active Substance: ALBUTEROL SULFATE
     Dosage: UNK, 2 PUFFS BD + PRN
     Dates: start: 20211028
  15. WARFARIN [Concomitant]
     Active Substance: WARFARIN
     Dosage: UNK, AS DIRECTED
     Dates: start: 20210923, end: 20211119
  16. MIRTAZAPINE [Concomitant]
     Active Substance: MIRTAZAPINE
     Dosage: 1 DOSAGE FORM, QD (1 TABLET ONCE A DAY AT NIGHT )
     Dates: start: 20210927

REACTIONS (6)
  - Akathisia [Recovered/Resolved]
  - Vision blurred [Unknown]
  - Drug hypersensitivity [Recovered/Resolved]
  - Nausea [Unknown]
  - Pruritus [Unknown]
  - Malaise [Unknown]

NARRATIVE: CASE EVENT DATE: 20211111
